FAERS Safety Report 18666039 (Version 1)
Quarter: 2020Q4

REPORT INFORMATION
  Report Type: Spontaneous
  Country: GB (occurrence: GB)
  Receive Date: 20201226
  Receipt Date: 20201226
  Transmission Date: 20210114
  Serious: Yes (Other)
  Sender: FDA-Public Use
  Company Number: GB-TEVA-2020-GB-1860836

PATIENT
  Age: 47 Year
  Sex: Female
  Weight: 60.77 kg

DRUGS (1)
  1. AMOXICILLIN. [Suspect]
     Active Substance: AMOXICILLIN
     Indication: EAR INFECTION
     Dosage: 1500 MG
     Route: 048
     Dates: start: 20201110, end: 20201116

REACTIONS (6)
  - Skin warm [Recovered/Resolved with Sequelae]
  - Drug effective for unapproved indication [Unknown]
  - Sensitive skin [Unknown]
  - Rash papular [Recovered/Resolved with Sequelae]
  - Pruritus [Recovered/Resolved with Sequelae]
  - Erythema [Recovered/Resolved with Sequelae]

NARRATIVE: CASE EVENT DATE: 20201116
